FAERS Safety Report 4292398-2 (Version None)
Quarter: 2004Q1

REPORT INFORMATION
  Report Type: 
  Country: None (occurrence: None)
  Receive Date: 20040126
  Receipt Date: 20031015
  Transmission Date: 20041129
  Serious: No
  Sender: FDA-Public Use
  Company Number: USA031049981

PATIENT
  Sex: Female

DRUGS (6)
  1. FORTEO [Suspect]
     Indication: OSTEOPOROSIS
     Dosage: 20 UG/DAY
     Dates: start: 20030818
  2. CELEBREX [Concomitant]
  3. NEURONTIN [Concomitant]
  4. COUMADIN [Concomitant]
  5. DILANTIN [Concomitant]
  6. ZETIA [Concomitant]

REACTIONS (1)
  - PAIN IN EXTREMITY [None]
